FAERS Safety Report 14326842 (Version 1)
Quarter: 2017Q4

REPORT INFORMATION
  Report Type: Spontaneous
  Country: US (occurrence: US)
  Receive Date: 20171226
  Receipt Date: 20171226
  Transmission Date: 20180321
  Serious: Yes (Hospitalization, Disabling, Other)
  Sender: FDA-Public Use
  Company Number: None

PATIENT
  Age: 11 Year
  Sex: Female
  Weight: 45 kg

DRUGS (12)
  1. FLOVENT [Concomitant]
     Active Substance: FLUTICASONE PROPIONATE
  2. FLONASE [Concomitant]
     Active Substance: FLUTICASONE PROPIONATE
  3. OMEPREROZOLE [Concomitant]
  4. VITAMIN D [Concomitant]
     Active Substance: CHOLECALCIFEROL
  5. VITAMIN B6 [Concomitant]
     Active Substance: PYRIDOXINE HYDROCHLORIDE
  6. KEPPRA [Concomitant]
     Active Substance: LEVETIRACETAM
  7. GABAPENTIN. [Concomitant]
     Active Substance: GABAPENTIN
  8. EPIPEN [Concomitant]
     Active Substance: EPINEPHRINE
  9. ENTYVIO [Suspect]
     Active Substance: VEDOLIZUMAB
     Indication: CROHN^S DISEASE
     Dosage: QUANTITY:4 INJECTION(S);OTHER FREQUENCY:EVERY 8 WEEKS;?
     Route: 042
  10. KELFLEX [Concomitant]
  11. ALBUTERAL [Concomitant]
     Active Substance: ALBUTEROL
  12. BENADRYL [Concomitant]
     Active Substance: DIPHENHYDRAMINE HYDROCHLORIDE

REACTIONS (3)
  - Compartment syndrome [None]
  - Infection [None]
  - Seizure [None]

NARRATIVE: CASE EVENT DATE: 20170710
